FAERS Safety Report 20743889 (Version 4)
Quarter: 2022Q3

REPORT INFORMATION
  Report Type: Spontaneous
  Country: US (occurrence: US)
  Receive Date: 20220425
  Receipt Date: 20220818
  Transmission Date: 20221027
  Serious: Yes (Hospitalization)
  Sender: FDA-Public Use
  Company Number: US-PFIZER INC-202200568858

PATIENT
  Age: 55 Year
  Sex: Female
  Weight: 61.23 kg

DRUGS (1)
  1. TALZENNA [Suspect]
     Active Substance: TALAZOPARIB TOSYLATE
     Indication: Neoplasm malignant
     Dosage: 1 MG, 1X/DAY

REACTIONS (2)
  - Arthropathy [Recovering/Resolving]
  - Arthritis [Recovering/Resolving]
